FAERS Safety Report 5882745-X (Version None)
Quarter: 2008Q3

REPORT INFORMATION
  Report Type: 
  Country: None (occurrence: None)
  Receive Date: 20080913
  Receipt Date: 20080814
  Transmission Date: 20090109
  Serious: No
  Sender: FDA-Public Use
  Company Number: US-ABBOTT-08P-163-0471066-00

PATIENT
  Sex: Female
  Weight: 64.922 kg

DRUGS (12)
  1. HUMIRA [Suspect]
     Indication: CROHN'S DISEASE
     Route: 058
     Dates: start: 20080501
  2. MESALAMINE [Concomitant]
     Indication: CROHN'S DISEASE
     Route: 048
     Dates: start: 20071001
  3. ZIFAXIN [Concomitant]
     Indication: CROHN'S DISEASE
     Route: 048
     Dates: start: 20071001
  4. ROBENOL FORTE [Concomitant]
     Indication: CROHN'S DISEASE
     Route: 048
     Dates: start: 20080601
  5. DEXTROPROPOXYPHENE HYDROCHLORIDE [Concomitant]
     Indication: PAIN
     Dosage: 4-6 PILLS AS NEEDED
     Route: 048
     Dates: start: 20071001
  6. AGLUTAMINE [Concomitant]
     Indication: JOINT DESTRUCTION
     Route: 048
     Dates: start: 20080201
  7. CALCIUM-SANDOZ [Concomitant]
     Indication: DRUG USE FOR UNKNOWN INDICATION
     Route: 048
  8. MULTI-VITAMINS [Concomitant]
     Indication: DRUG USE FOR UNKNOWN INDICATION
     Route: 048
  9. ESCITALOPRAM OXALATE [Concomitant]
     Indication: DEPRESSION
     Route: 048
     Dates: start: 20071201
  10. CLONAZEPAM [Concomitant]
     Indication: INSOMNIA
     Dosage: AT BEDTIME
     Route: 048
     Dates: start: 20071201
  11. CLONAZEPAM [Concomitant]
     Indication: ANXIETY
  12. TRIAMCINOLONE ACETONIDE [Concomitant]
     Indication: JOINT DESTRUCTION
     Route: 050
     Dates: start: 20080301

REACTIONS (9)
  - ANOREXIA [None]
  - DIZZINESS [None]
  - HEART RATE INCREASED [None]
  - HYPERTENSION [None]
  - INFLUENZA LIKE ILLNESS [None]
  - NAUSEA [None]
  - PAIN IN EXTREMITY [None]
  - PHARYNGITIS [None]
  - SINUSITIS [None]
